FAERS Safety Report 5474717-4 (Version None)
Quarter: 2007Q3

REPORT INFORMATION
  Report Type: 
  Country: None (occurrence: None)
  Receive Date: 20070927
  Receipt Date: 20070927
  Transmission Date: 20080115
  Serious: No
  Sender: FDA-Public Use
  Company Number: None

PATIENT
  Age: 48 Year
  Sex: Male
  Weight: 66.2252 kg

DRUGS (2)
  1. LEVAQUIN [Suspect]
     Indication: DIVERTICULITIS
     Dosage: ?? ALL DAY AND NIGHT IV DRIP
     Route: 041
     Dates: start: 20060707, end: 20070710
  2. LEVAQUIN [Suspect]
     Indication: DIVERTICULITIS
     Dosage: 500 MG 3 X'S DAY PO
     Route: 048

REACTIONS (30)
  - ABNORMAL DREAMS [None]
  - ANXIETY [None]
  - ASTHENOPIA [None]
  - BLEPHAROSPASM [None]
  - BODY TEMPERATURE FLUCTUATION [None]
  - CONFUSIONAL STATE [None]
  - COORDINATION ABNORMAL [None]
  - DEPERSONALISATION [None]
  - DEPRESSION [None]
  - DYSPHAGIA [None]
  - EMOTIONAL DISORDER [None]
  - EYE DISORDER [None]
  - FATIGUE [None]
  - FEELING ABNORMAL [None]
  - FEELING JITTERY [None]
  - HEAD DISCOMFORT [None]
  - HYPERACUSIS [None]
  - HYPERSOMNIA [None]
  - HYPOAESTHESIA [None]
  - ILL-DEFINED DISORDER [None]
  - INFLUENZA LIKE ILLNESS [None]
  - INSOMNIA [None]
  - NIGHTMARE [None]
  - PHOTOPHOBIA [None]
  - SPEECH DISORDER [None]
  - SUICIDAL IDEATION [None]
  - TEMPERATURE INTOLERANCE [None]
  - TREMOR [None]
  - VISION BLURRED [None]
  - WEIGHT DECREASED [None]
